FAERS Safety Report 16096993 (Version 2)
Quarter: 2019Q2

REPORT INFORMATION
  Report Type: Spontaneous
  Country: US (occurrence: US)
  Receive Date: 20190320
  Receipt Date: 20190414
  Transmission Date: 20190711
  Serious: No
  Sender: FDA-Public Use
  Company Number: US-JNJFOC-20190230293

PATIENT
  Sex: Female
  Weight: 41.8 kg

DRUGS (5)
  1. MEPROBAMATE. [Concomitant]
     Active Substance: MEPROBAMATE
     Indication: ANXIETY
     Dosage: USING SINCE WHEN PATIENT WAS 19 TO 20 YEARS OLD
     Route: 048
  2. TYLENOL REGULAR STRENGTH [Suspect]
     Active Substance: ACETAMINOPHEN
     Indication: PAIN
     Dosage: 4 TO 5 TIMES A DAY
     Route: 048
     Dates: start: 201804, end: 2018
  3. TOPROL XL [Concomitant]
     Active Substance: METOPROLOL SUCCINATE
     Indication: BLOOD PRESSURE MEASUREMENT
     Dosage: BEEN TAKING FOR 20 YEARS
     Route: 048
  4. HYDROCODONE [Concomitant]
     Active Substance: HYDROCODONE
     Indication: PAIN
     Route: 048
  5. ADVIL [Concomitant]
     Active Substance: IBUPROFEN
     Indication: PAIN
     Route: 048
     Dates: start: 201711

REACTIONS (1)
  - Drug ineffective [Unknown]
